FAERS Safety Report 5105330-6 (Version None)
Quarter: 2006Q3

REPORT INFORMATION
  Report Type: 
  Country: None (occurrence: None)
  Receive Date: 20060915
  Receipt Date: 20060306
  Transmission Date: 20061208
  Serious: Yes (Other)
  Sender: FDA-Public Use
  Company Number: PHBS2006BE03613

PATIENT
  Age: 50 Year
  Sex: Female

DRUGS (3)
  1. MICROGYNON [Concomitant]
  2. BISOPROLOL FUMARATE W/HYDROCHLOROTHIAZIDE [Concomitant]
  3. LAMISIL [Suspect]
     Indication: NAIL TINEA
     Dosage: 250 MG/D
     Route: 048
     Dates: start: 20051107, end: 20060201

REACTIONS (5)
  - ALANINE AMINOTRANSFERASE INCREASED [None]
  - ASPARTATE AMINOTRANSFERASE INCREASED [None]
  - GASTROINTESTINAL CARCINOMA [None]
  - LIVER DISORDER [None]
  - SURGERY [None]
